FAERS Safety Report 16325869 (Version 1)
Quarter: 2019Q2

REPORT INFORMATION
  Report Type: Spontaneous
  Country: US (occurrence: US)
  Receive Date: 20190516
  Receipt Date: 20190516
  Transmission Date: 20190711
  Serious: Yes (Death, Hospitalization)
  Sender: FDA-Public Use
  Company Number: None

PATIENT
  Age: 57 Year
  Sex: Male
  Weight: 99 kg

DRUGS (6)
  1. ESTER C (VITAMIN C SUPPLEMENT) [Concomitant]
  2. PREDNISONE. [Concomitant]
     Active Substance: PREDNISONE
  3. LIPITOR [Concomitant]
     Active Substance: ATORVASTATIN CALCIUM
  4. METHOTREXATE. [Concomitant]
     Active Substance: METHOTREXATE
  5. HUMIRA [Suspect]
     Active Substance: ADALIMUMAB
     Indication: RHEUMATOID ARTHRITIS
     Dosage: ?          QUANTITY:1 INJECTION(S);OTHER FREQUENCY:EVERY 2 WEEKS;?
     Route: 030
     Dates: start: 20180620, end: 20190213
  6. LISINOPRIL. [Concomitant]
     Active Substance: LISINOPRIL

REACTIONS (13)
  - Vasodilatation [None]
  - Renal failure [None]
  - Dyspnoea [None]
  - Pulmonary fibrosis [None]
  - Respiratory tract inflammation [None]
  - Hepatic failure [None]
  - Pneumonia [None]
  - Cardiomegaly [None]
  - Dialysis [None]
  - Acute respiratory distress syndrome [None]
  - Septic shock [None]
  - Cystic lung disease [None]
  - Connective tissue disorder [None]

NARRATIVE: CASE EVENT DATE: 20190222
